FAERS Safety Report 15613212 (Version 1)
Quarter: 2018Q4

REPORT INFORMATION
  Report Type: Spontaneous
  Country: JP (occurrence: JP)
  Receive Date: 20181113
  Receipt Date: 20181113
  Transmission Date: 20190205
  Serious: Yes (Death, Hospitalization, Disabling, Other)
  Sender: FDA-Public Use
  Company Number: JP-PFIZER INC-2018459182

PATIENT
  Age: 40 Year
  Sex: Female
  Weight: 40.8 kg

DRUGS (16)
  1. PACLITAXEL HOSPIRA [Suspect]
     Active Substance: PACLITAXEL
     Indication: MALIGNANT NEOPLASM OF UNKNOWN PRIMARY SITE
     Dosage: 247 MG PER 1 TIME
     Dates: start: 20180213
  2. FLAGYL [Suspect]
     Active Substance: METRONIDAZOLE\METRONIDAZOLE HYDROCHLORIDE
     Indication: INFECTION
     Dosage: 1500 MG, 1X/DAY, 500 MG 3 TIMES
     Route: 048
     Dates: start: 201803, end: 20180320
  3. METOCLOPRAMIDE. [Concomitant]
     Active Substance: METOCLOPRAMIDE
     Dosage: UNK
     Dates: start: 201805
  4. GOSHAJINKIGAN [Concomitant]
     Active Substance: HERBALS
     Dosage: UNK
     Dates: start: 201805
  5. DECADRON [Concomitant]
     Active Substance: DEXAMETHASONE
  6. FLAGYL [Suspect]
     Active Substance: METRONIDAZOLE\METRONIDAZOLE HYDROCHLORIDE
     Dosage: 2000 MG, 1X/DAY, 4 TIMES
     Route: 048
     Dates: start: 20180406, end: 20180512
  7. EMEND [Concomitant]
     Active Substance: APREPITANT
  8. CARBOPLATIN. [Suspect]
     Active Substance: CARBOPLATIN
     Indication: MALIGNANT NEOPLASM OF UNKNOWN PRIMARY SITE
     Dosage: 698 MG PER 1 TIME
     Dates: start: 20180213
  9. CEFTRIAXONE SODIUM. [Concomitant]
     Active Substance: CEFTRIAXONE SODIUM
     Dosage: 2 G, 1X/DAY
     Dates: start: 20180309, end: 20180310
  10. METHYCOBAL [Concomitant]
     Active Substance: METHYLCOBALAMIN
     Dosage: UNK
     Dates: start: 201805
  11. NEXIUM [Concomitant]
     Active Substance: ESOMEPRAZOLE MAGNESIUM
     Dosage: UNK
     Dates: start: 201802
  12. DAIKENCHUTO [Concomitant]
     Active Substance: HERBALS
     Dosage: UNK
     Dates: start: 201802
  13. RESTAMINE [Concomitant]
  14. FOSMICIN [Concomitant]
     Active Substance: FOSFOMYCIN CALCIUM
     Dosage: UNK
     Dates: start: 201804
  15. WARFARIN [Concomitant]
     Active Substance: WARFARIN
     Dosage: UNK
     Dates: start: 201802
  16. MERISLON [Concomitant]
     Active Substance: BETAHISTINE MESILATE
     Dosage: UNK
     Dates: start: 201805

REACTIONS (9)
  - Tumour associated fever [Unknown]
  - Death [Fatal]
  - Pneumonia aspiration [Unknown]
  - Infection [Unknown]
  - Neoplasm progression [Unknown]
  - Toxic encephalopathy [Recovered/Resolved with Sequelae]
  - Pyrexia [Unknown]
  - Pleurisy [Unknown]
  - General physical health deterioration [Unknown]

NARRATIVE: CASE EVENT DATE: 20180221
